FAERS Safety Report 4280172-2 (Version None)
Quarter: 2004Q1

REPORT INFORMATION
  Report Type: 
  Country: None (occurrence: None)
  Receive Date: 20040126
  Receipt Date: 20040112
  Transmission Date: 20041129
  Serious: Yes (Hospitalization)
  Sender: FDA-Public Use
  Company Number: US-JNJFOC-20031203169

PATIENT
  Age: 58 Year
  Sex: Male

DRUGS (14)
  1. INFLIXIMAB, RECOMBINANT-BLINDED (INFLIXIMAB, RECOMBINANT) LYOPHILIZED [Suspect]
     Indication: CHRONIC OBSTRUCTIVE AIRWAYS DISEASE
     Dosage: INTRAVENOUS
     Route: 042
     Dates: start: 20030911
  2. INFLIXIMAB, RECOMBINANT-BLINDED (INFLIXIMAB, RECOMBINANT) LYOPHILIZED [Suspect]
     Indication: CHRONIC OBSTRUCTIVE AIRWAYS DISEASE
     Dosage: INTRAVENOUS
     Route: 042
     Dates: start: 20030924
  3. INFLIXIMAB, RECOMBINANT-BLINDED (INFLIXIMAB, RECOMBINANT) LYOPHILIZED [Suspect]
     Indication: CHRONIC OBSTRUCTIVE AIRWAYS DISEASE
     Dosage: INTRAVENOUS
     Route: 042
     Dates: start: 20031105
  4. PLACEBO (PLACEBO) LYOPHILIZED POWDER [Suspect]
     Indication: CHRONIC OBSTRUCTIVE AIRWAYS DISEASE
     Dosage: INTRAVENOUS
     Route: 042
     Dates: start: 20030911
  5. PLACEBO (PLACEBO) LYOPHILIZED POWDER [Suspect]
     Indication: CHRONIC OBSTRUCTIVE AIRWAYS DISEASE
     Dosage: INTRAVENOUS
     Route: 042
     Dates: start: 20030924
  6. PLACEBO (PLACEBO) LYOPHILIZED POWDER [Suspect]
     Indication: CHRONIC OBSTRUCTIVE AIRWAYS DISEASE
     Dosage: INTRAVENOUS
     Route: 042
     Dates: start: 20031105
  7. ADVAIR (SERETIDE MITE) [Concomitant]
  8. ALBUTEROL [Concomitant]
  9. ATROVENT [Concomitant]
  10. DAYQUIL (VICKS FORMULA 44M) [Concomitant]
  11. MULTIVITAMIN (MULTIVITAMINS) [Concomitant]
  12. VITAMIN C (ASCORBIC ACID) [Concomitant]
  13. ASPIRIN [Concomitant]
  14. COENZYME (COENZYME A) [Concomitant]

REACTIONS (8)
  - CEREBRAL VENOUS THROMBOSIS [None]
  - DEHYDRATION [None]
  - MENINGITIS PNEUMOCOCCAL [None]
  - PNEUMONIA STREPTOCOCCAL [None]
  - REFUSAL OF TREATMENT BY PATIENT [None]
  - SUPERIOR SAGITTAL SINUS THROMBOSIS [None]
  - TRANSVERSE SINUS THROMBOSIS [None]
  - VIRAL PHARYNGITIS [None]
